FAERS Safety Report 7511710-1 (Version None)
Quarter: 2011Q2

REPORT INFORMATION
  Report Type: 
  Country: None (occurrence: None)
  Receive Date: 20110531
  Receipt Date: 20110517
  Transmission Date: 20111010
  Serious: Yes (Other)
  Sender: FDA-Public Use
  Company Number: CA-JNJFOC-20110508456

PATIENT
  Sex: Male
  Weight: 74 kg

DRUGS (2)
  1. REMICADE [Suspect]
     Indication: PRODUCT USED FOR UNKNOWN INDICATION
     Route: 042
     Dates: start: 20110517
  2. REMICADE [Suspect]
     Route: 042
     Dates: start: 20091113

REACTIONS (4)
  - INFUSION RELATED REACTION [None]
  - BODY TEMPERATURE INCREASED [None]
  - HYPERTENSION [None]
  - HEART RATE INCREASED [None]
